FAERS Safety Report 15595556 (Version 1)
Quarter: 2018Q4

REPORT INFORMATION
  Report Type: Other
  Country: FR (occurrence: FR)
  Receive Date: 20181107
  Receipt Date: 20181107
  Transmission Date: 20190205
  Serious: Yes (Other)
  Sender: FDA-Public Use
  Company Number: FR-ASTELLAS-2018US047121

PATIENT
  Age: 69 Year

DRUGS (1)
  1. ERLOTINIB [Suspect]
     Active Substance: ERLOTINIB
     Indication: ADENOCARCINOMA
     Dosage: UNK, UNKNOWN FREQ.
     Route: 065

REACTIONS (2)
  - Metastases to thorax [Unknown]
  - Malignant neoplasm progression [Unknown]
